FAERS Safety Report 7767206-5 (Version None)
Quarter: 2011Q3

REPORT INFORMATION
  Report Type: 
  Country: None (occurrence: None)
  Receive Date: 20110922
  Receipt Date: 20110107
  Transmission Date: 20111222
  Serious: No
  Sender: FDA-Public Use
  Company Number: US-ASTRAZENECA-2011SE01335

PATIENT
  Age: 56 Year
  Sex: Female

DRUGS (2)
  1. NEXIUM [Concomitant]
     Route: 048
     Dates: start: 20091201
  2. SEROQUEL [Suspect]
     Indication: BIPOLAR DISORDER
     Route: 048
     Dates: start: 20091001, end: 20100101

REACTIONS (3)
  - DRUG INEFFECTIVE [None]
  - BIPOLAR DISORDER [None]
  - INSOMNIA [None]
